FAERS Safety Report 24108623 (Version 2)
Quarter: 2024Q3

REPORT INFORMATION
  Report Type: Report from Study
  Country: US (occurrence: US)
  Receive Date: 20240718
  Receipt Date: 20240903
  Transmission Date: 20241017
  Serious: Yes (Hospitalization, Other)
  Sender: UCB
  Company Number: US-UCBSA-2024012151

PATIENT
  Sex: Male

DRUGS (15)
  1. FINTEPLA [Interacting]
     Active Substance: FENFLURAMINE
     Indication: Lennox-Gastaut syndrome
     Dosage: 2 MILLILITER, 2X/DAY (BID)
     Route: 048
     Dates: start: 202402
  2. FINTEPLA [Interacting]
     Active Substance: FENFLURAMINE
     Dosage: 4 MILLILITER, 2X/DAY (BID)
     Route: 048
     Dates: start: 202402
  3. FINTEPLA [Interacting]
     Active Substance: FENFLURAMINE
     Dosage: 4ML Q AM AND 5.9 ML Q HS
     Route: 048
     Dates: start: 202402
  4. FINTEPLA [Interacting]
     Active Substance: FENFLURAMINE
     Dosage: 4 ML Q AM AND 7.8 ML Q HS
     Route: 048
     Dates: start: 20240304
  5. FINTEPLA [Interacting]
     Active Substance: FENFLURAMINE
     Dosage: 2 MILLILITER, 2X/DAY (BID)
     Route: 048
     Dates: start: 20240304
  6. FINTEPLA [Interacting]
     Active Substance: FENFLURAMINE
     Dosage: 4 ML Q AM AND 7.8 ML Q HS
     Route: 048
     Dates: start: 20240305
  7. FINTEPLA [Interacting]
     Active Substance: FENFLURAMINE
     Dosage: 4 ML QAM AND 6 ML QPM
     Route: 048
  8. FINTEPLA [Interacting]
     Active Substance: FENFLURAMINE
     Dosage: 2 ML QAM AND 8 ML QOM
     Route: 048
  9. FINTEPLA [Interacting]
     Active Substance: FENFLURAMINE
     Dosage: 2 ML QAM AND 6 ML QPM
     Route: 048
     Dates: start: 20240507
  10. FINTEPLA [Interacting]
     Active Substance: FENFLURAMINE
     Dosage: 2 ML EVERY MORNING AND 6ML AT BEDTIME
     Route: 048
  11. FINTEPLA [Interacting]
     Active Substance: FENFLURAMINE
     Dosage: 1 ML AM 5 ML PM
     Route: 048
     Dates: start: 2024
  12. ADDERALL [Concomitant]
     Active Substance: AMPHETAMINE ASPARTATE\AMPHETAMINE SULFATE\DEXTROAMPHETAMINE SACCHARATE\DEXTROAMPHETAMINE SULFATE
     Indication: Product used for unknown indication
     Dosage: 10 MILLIGRAM, 2X/DAY (BID)
     Route: 048
  13. ADDERALL [Concomitant]
     Active Substance: AMPHETAMINE ASPARTATE\AMPHETAMINE SULFATE\DEXTROAMPHETAMINE SACCHARATE\DEXTROAMPHETAMINE SULFATE
     Dosage: 10 MILLIGRAM, ONCE DAILY (QD)
     Route: 048
  14. PROZAC [Concomitant]
     Active Substance: FLUOXETINE HYDROCHLORIDE
     Indication: Product used for unknown indication
     Dosage: 10 MILLIGRAM, ONCE DAILY (QD)
     Route: 048
  15. PROZAC [Concomitant]
     Active Substance: FLUOXETINE HYDROCHLORIDE
     Dosage: CUT 50% 1 WEEK THEN STOPPED
     Route: 048

REACTIONS (14)
  - Somnolence [Recovering/Resolving]
  - Seizure [Not Recovered/Not Resolved]
  - Attention deficit hyperactivity disorder [Not Recovered/Not Resolved]
  - Hypersomnia [Not Recovered/Not Resolved]
  - Decreased appetite [Recovering/Resolving]
  - Feeling cold [Not Recovered/Not Resolved]
  - Nasal congestion [Not Recovered/Not Resolved]
  - Malaise [Not Recovered/Not Resolved]
  - Weight decreased [Not Recovered/Not Resolved]
  - Drug interaction [Unknown]
  - Fatigue [Not Recovered/Not Resolved]
  - Sleep disorder [Not Recovered/Not Resolved]
  - Off label use [Unknown]
  - Overdose [Unknown]

NARRATIVE: CASE EVENT DATE: 20240101
